FAERS Safety Report 9441626 (Version 3)
Quarter: 2013Q3

REPORT INFORMATION
  Report Type: Report from Study
  Country: AR (occurrence: AR)
  Receive Date: 20130806
  Receipt Date: 20130828
  Transmission Date: 20140515
  Serious: Yes (Other)
  Sender: FDA-Public Use
  Company Number: AR-ROCHE-1256006

PATIENT
  Sex: Female

DRUGS (1)
  1. RANIBIZUMAB [Suspect]
     Indication: MACULOPATHY
     Route: 050

REACTIONS (4)
  - Glaucoma [Unknown]
  - Metamorphopsia [Not Recovered/Not Resolved]
  - Visual acuity reduced [Unknown]
  - Drug ineffective [Not Recovered/Not Resolved]
